FAERS Safety Report 6845152-9 (Version None)
Quarter: 2010Q3

REPORT INFORMATION
  Report Type: 
  Country: None (occurrence: None)
  Receive Date: 20100715
  Receipt Date: 20070809
  Transmission Date: 20110219
  Serious: No
  Sender: FDA-Public Use
  Company Number: US-PFIZER INC-2007069434

PATIENT
  Sex: Female

DRUGS (3)
  1. CHANTIX [Suspect]
  2. WELLBUTRIN [Concomitant]
  3. DRUG, UNSPECIFIED [Concomitant]

REACTIONS (1)
  - DRUG INEFFECTIVE [None]
